FAERS Safety Report 11159907 (Version 1)
Quarter: 2015Q2

REPORT INFORMATION
  Report Type: Report from Study
  Country: US (occurrence: US)
  Receive Date: 20150603
  Receipt Date: 20150603
  Transmission Date: 20150821
  Serious: Yes (Hospitalization, Disabling, Other)
  Sender: FDA-Public Use
  Company Number: PHEH2015US007234

PATIENT
  Age: 11 Year
  Sex: Female
  Weight: 31.8 kg

DRUGS (3)
  1. DESFERAL [Concomitant]
     Active Substance: DEFEROXAMINE MESYLATE
     Indication: HAEMOCHROMATOSIS
     Dosage: 775 MG, 5 DAYS PER WEEK
     Route: 058
     Dates: start: 20140825, end: 20150406
  2. HYDROXYUREA. [Concomitant]
     Active Substance: HYDROXYUREA
     Indication: SICKLE CELL ANAEMIA
     Dosage: 900 MG, QD
     Route: 048
     Dates: start: 201303, end: 201504
  3. EXJADE [Suspect]
     Active Substance: DEFERASIROX
     Indication: SICKLE CELL ANAEMIA
     Dosage: 1000 MG, QD
     Route: 048
     Dates: start: 20130529, end: 20150406

REACTIONS (9)
  - Oedema [Unknown]
  - IgA nephropathy [Recovering/Resolving]
  - Hypertension [Recovering/Resolving]
  - Urine output decreased [Unknown]
  - Nephrotic syndrome [Recovering/Resolving]
  - Blood creatinine increased [Recovering/Resolving]
  - Haemoglobin decreased [Unknown]
  - Renal failure [Unknown]
  - Dehydration [Unknown]

NARRATIVE: CASE EVENT DATE: 20150406
